FAERS Safety Report 16515618 (Version 1)
Quarter: 2019Q3

REPORT INFORMATION
  Report Type: Other
  Country: None (occurrence: US)
  Receive Date: 20190702
  Receipt Date: 20190702
  Transmission Date: 20191004
  Serious: Yes (Death, Life-Threatening, Hospitalization, Other)
  Sender: FDA-Public Use
  Company Number: US-C B FLEET CO INC-201906-US-001764

PATIENT
  Age: 64 Year
  Sex: Female

DRUGS (1)
  1. ASPIRIN. [Suspect]
     Active Substance: ASPIRIN
     Indication: SUICIDE ATTEMPT
     Dosage: TOOK ENTIRE BOTTLE

REACTIONS (6)
  - Intentional overdose [Fatal]
  - Acute kidney injury [Fatal]
  - Bezoar [Fatal]
  - Dyspnoea [Fatal]
  - Encephalopathy [Fatal]
  - Suicide attempt [Fatal]
